FAERS Safety Report 8104982-6 (Version None)
Quarter: 2012Q1

REPORT INFORMATION
  Report Type: 
  Country: None (occurrence: None)
  Receive Date: 20120201
  Receipt Date: 20120130
  Transmission Date: 20120608
  Serious: Yes (Other)
  Sender: FDA-Public Use
  Company Number: US-GLAXOSMITHKLINE-A0964053A

PATIENT
  Age: 60 Year
  Sex: Female

DRUGS (2)
  1. VENTOLIN [Suspect]
     Indication: PRODUCT USED FOR UNKNOWN INDICATION
     Dosage: 90MCG UNKNOWN
     Route: 055
     Dates: start: 20090226
  2. SMALL VOLUME NEBULIZER MACHINE [Concomitant]

REACTIONS (4)
  - MALAISE [None]
  - MIDDLE INSOMNIA [None]
  - ASTHMA [None]
  - DYSPNOEA [None]
